FAERS Safety Report 4382452-9 (Version None)
Quarter: 2004Q2

REPORT INFORMATION
  Report Type: 
  Country: None (occurrence: None)
  Receive Date: 20040617
  Receipt Date: 20040608
  Transmission Date: 20050107
  Serious: Yes (Disabling)
  Sender: FDA-Public Use
  Company Number: 2004UW10928

PATIENT
  Age: 60 Year
  Sex: Male

DRUGS (6)
  1. SEROQUEL [Suspect]
     Indication: BIPOLAR I DISORDER
     Dosage: 150 MG QD PO
     Route: 048
  2. SEROQUEL [Suspect]
     Indication: BIPOLAR I DISORDER
     Dosage: 100 MG QD PO
     Route: 048
     Dates: start: 20020101
  3. APO-HYDRO [Concomitant]
  4. THEO-DUR [Concomitant]
  5. VASOTEC [Concomitant]
  6. ALPRAZOLAM [Concomitant]

REACTIONS (1)
  - MICTURITION URGENCY [None]
